FAERS Safety Report 19676183 (Version 9)
Quarter: 2022Q1

REPORT INFORMATION
  Report Type: Report from Study
  Country: US (occurrence: US)
  Receive Date: 20210809
  Receipt Date: 20220208
  Transmission Date: 20220423
  Serious: Yes (Hospitalization, Other)
  Sender: FDA-Public Use
  Company Number: NVSC2021US173835

PATIENT
  Age: 59 Year
  Sex: Female

DRUGS (2)
  1. ADAKVEO [Suspect]
     Active Substance: CRIZANLIZUMAB-TMCA
     Indication: Sickle cell disease
     Dosage: UNK, QMO
     Route: 042
     Dates: start: 20210614, end: 20210614
  2. ADAKVEO [Suspect]
     Active Substance: CRIZANLIZUMAB-TMCA
     Dosage: UNK, QMO (INTO BLOOD STREAM VIA VEIN)
     Route: 042
     Dates: start: 20210714

REACTIONS (14)
  - Malaise [Unknown]
  - Feeling abnormal [Unknown]
  - Infection [Unknown]
  - Blister [Unknown]
  - Memory impairment [Unknown]
  - Urinary tract infection [Recovering/Resolving]
  - Asthenia [Recovering/Resolving]
  - Uterine infection [Unknown]
  - Gastric disorder [Unknown]
  - Fatigue [Unknown]
  - Pain [Unknown]
  - Chest pain [Recovering/Resolving]
  - Infusion related reaction [Unknown]
  - Pain in extremity [Unknown]

NARRATIVE: CASE EVENT DATE: 20210614
